FAERS Safety Report 5566785-6 (Version None)
Quarter: 2007Q4

REPORT INFORMATION
  Report Type: 
  Country: None (occurrence: None)
  Receive Date: 20071219
  Receipt Date: 20071218
  Transmission Date: 20080405
  Serious: Yes (Other)
  Sender: FDA-Public Use
  Company Number: A0699522A

PATIENT
  Age: 40 Year
  Sex: Male

DRUGS (4)
  1. BECONASE [Suspect]
     Dosage: 1SPR TWICE PER DAY
     Route: 045
     Dates: start: 20070417
  2. DEPAKOTE [Concomitant]
  3. KLONOPIN [Concomitant]
  4. SEROQUEL [Concomitant]

REACTIONS (2)
  - DYSGRAPHIA [None]
  - TREMOR [None]
